FAERS Safety Report 13768866 (Version 1)
Quarter: 2017Q3

REPORT INFORMATION
  Report Type: Spontaneous
  Country: AU (occurrence: AU)
  Receive Date: 20170719
  Receipt Date: 20170719
  Transmission Date: 20171127
  Serious: Yes (Other)
  Sender: FDA-Public Use
  Company Number: AU-TEVA-786538ISR

PATIENT
  Age: 49 Year
  Sex: Female

DRUGS (9)
  1. XOLAIR [Concomitant]
     Active Substance: OMALIZUMAB
     Dosage: 10 MILLIGRAM DAILY; 300 MG MONTHLY
     Route: 058
     Dates: start: 2016
  2. PAROXETINE (BRAND UNSPECIFIED) [Suspect]
     Active Substance: PAROXETINE MESYLATE
     Indication: MAJOR DEPRESSION
     Dosage: UNKNOWN DOSAGE
     Dates: start: 2015
  3. QUETIAPINE (BRAND UNSPECIFIED) [Suspect]
     Active Substance: QUETIAPINE
     Indication: MENTAL DISORDER
     Dosage: UNKNOWN DOSAGE
     Dates: start: 2015
  4. XOLAIR [Concomitant]
     Active Substance: OMALIZUMAB
     Dosage: 5.3571 MILLIGRAM DAILY; 150 MG DOSES EVERY 4 WEEKS
     Route: 058
     Dates: start: 20160506, end: 2016
  5. CITALOPRAM (BRAND UNSPECIFIED) [Suspect]
     Active Substance: CITALOPRAM HYDROBROMIDE
  6. XOLAIR [Concomitant]
     Active Substance: OMALIZUMAB
     Indication: URTICARIA
     Dosage: 150 MG TO 300 MG EVERY 4 WEEKS
     Route: 058
     Dates: start: 20150925, end: 20160205
  7. FEXOFENADINE [Concomitant]
     Active Substance: FEXOFENADINE\FEXOFENADINE HYDROCHLORIDE
     Dosage: ONE TO TWO TABLETS DAILY
     Dates: start: 2015
  8. VALDOXAN [Concomitant]
     Active Substance: AGOMELATINE
     Dosage: UNKNOWN DOSAGE
     Dates: start: 2016
  9. CETIRIZINE (BRAND UNSPECIFIED) [Concomitant]
     Dosage: 20 MILLIGRAM DAILY; 20 MG DAILY
     Dates: start: 2015

REACTIONS (10)
  - Prescription drug used without a prescription [Unknown]
  - Depression [Unknown]
  - Hangover [Unknown]
  - Weight increased [Unknown]
  - Hypoaesthesia [Unknown]
  - Drug intolerance [Unknown]
  - Intervertebral disc degeneration [Unknown]
  - Urticaria [Unknown]
  - Paraesthesia [Unknown]
  - Cervical cord compression [Unknown]

NARRATIVE: CASE EVENT DATE: 2015
